FAERS Safety Report 24963895 (Version 1)
Quarter: 2025Q1

REPORT INFORMATION
  Report Type: Spontaneous
  Country: US (occurrence: US)
  Receive Date: 20250213
  Receipt Date: 20250213
  Transmission Date: 20250409
  Serious: No
  Sender: GRANULES PHARMACEUTICALS INC
  Company Number: US-GRANULES-US-2025GRASPO00050

PATIENT
  Age: 62 Year
  Sex: Female
  Weight: 180 kg

DRUGS (1)
  1. ACETAMINOPHEN [Suspect]
     Active Substance: ACETAMINOPHEN
     Indication: Pain
     Dosage: 100 IN ONE BOTTLE
     Route: 048
     Dates: start: 20241125, end: 20241129

REACTIONS (3)
  - Thirst [Unknown]
  - Dry mouth [Unknown]
  - Dental caries [Unknown]
